FAERS Safety Report 16122868 (Version 1)
Quarter: 2019Q1

REPORT INFORMATION
  Report Type: Spontaneous
  Country: US (occurrence: US)
  Receive Date: 20190222
  Receipt Date: 20190222
  Transmission Date: 20190418
  Serious: Yes (Hospitalization)
  Sender: FDA-Public Use
  Company Number: None

PATIENT
  Age: 57 Year
  Sex: Male

DRUGS (6)
  1. NEXAVAR [Suspect]
     Active Substance: SORAFENIB
     Indication: HEPATOCELLULAR CARCINOMA
     Route: 048
     Dates: start: 20190213
  2. AMLODIPINE [Concomitant]
     Active Substance: AMLODIPINE BESYLATE
     Dates: start: 20190122
  3. LACTULOSE. [Concomitant]
     Active Substance: LACTULOSE
     Dates: start: 20190207
  4. HYDROCO/APAP [Concomitant]
     Active Substance: ACETAMINOPHEN\HYDROCODONE
     Dates: start: 20190124
  5. LISINOPRL 40MG [Concomitant]
  6. LORAZEPAM 1MG [Concomitant]
     Active Substance: LORAZEPAM
     Dates: start: 20190218

REACTIONS (7)
  - Abdominal distension [None]
  - Nausea [None]
  - Movement disorder [None]
  - Fatigue [None]
  - Hospitalisation [None]
  - Dyspnoea [None]
  - Intra-abdominal fluid collection [None]

NARRATIVE: CASE EVENT DATE: 20190219
